FAERS Safety Report 6005034-1 (Version None)
Quarter: 2008Q4

REPORT INFORMATION
  Report Type: 
  Country: None (occurrence: None)
  Receive Date: 20081216
  Receipt Date: 20081001
  Transmission Date: 20090506
  Serious: No
  Sender: FDA-Public Use
  Company Number: US-BAUSCH-2008BL004269

PATIENT
  Age: 54 Year
  Sex: Female
  Weight: 71 kg

DRUGS (6)
  1. NEOMYCIN AND POLYMXIN B SULFATES AND HYDROCORTISONE [Suspect]
     Indication: EAR INFECTION
     Route: 001
     Dates: start: 20080901, end: 20080901
  2. PERCOCET [Concomitant]
     Indication: DRUG USE FOR UNKNOWN INDICATION
  3. METOPROLOL SUCCINATE [Concomitant]
     Indication: DRUG USE FOR UNKNOWN INDICATION
  4. KLONOPIN [Concomitant]
     Indication: DRUG USE FOR UNKNOWN INDICATION
  5. MAXAIR [Concomitant]
     Indication: ASTHMA
     Dates: start: 19950101, end: 20080913
  6. TYROSINE [Concomitant]
     Indication: DEPRESSION
     Route: 048
     Dates: start: 20080801, end: 20080801

REACTIONS (1)
  - HYPERSENSITIVITY [None]
